FAERS Safety Report 11630597 (Version 1)
Quarter: 2015Q4

REPORT INFORMATION
  Report Type: Spontaneous
  Country: US (occurrence: US)
  Receive Date: 20151014
  Receipt Date: 20151014
  Transmission Date: 20160304
  Serious: No
  Sender: FDA-Public Use
  Company Number: US-RB PHARMACEUTICALS LIMITED-RB-69004-2014

PATIENT
  Age: 25 Year
  Sex: Female

DRUGS (2)
  1. SUBOXONE [Suspect]
     Active Substance: BUPRENORPHINE HYDROCHLORIDE\NALOXONE HYDROCHLORIDE
     Indication: DRUG DEPENDENCE
     Dosage: 8 MG, TID
     Route: 060
  2. SUBOXONE [Suspect]
     Active Substance: BUPRENORPHINE HYDROCHLORIDE\NALOXONE HYDROCHLORIDE
     Dosage: 8 MG, QD, SOMETIMES 2 FILMS A DAY DEPENDING ON THE NEED.
     Route: 060

REACTIONS (9)
  - Hair growth abnormal [Unknown]
  - Anxiety [Unknown]
  - Menstruation irregular [Unknown]
  - Malaise [Unknown]
  - Agitation [Unknown]
  - Drug withdrawal syndrome [Recovered/Resolved]
  - Product preparation error [Not Recovered/Not Resolved]
  - Chills [Recovered/Resolved]
  - Depression [Unknown]
